FAERS Safety Report 12807290 (Version 1)
Quarter: 2016Q4

REPORT INFORMATION
  Report Type: Spontaneous
  Country: US (occurrence: US)
  Receive Date: 20161003
  Receipt Date: 20161003
  Transmission Date: 20170207
  Serious: Yes (Death)
  Sender: FDA-Public Use
  Company Number: None

PATIENT
  Age: 74 Year
  Sex: Female

DRUGS (4)
  1. COTELLIC [Suspect]
     Active Substance: COBIMETINIB
     Indication: SKIN CANCER
     Route: 048
     Dates: start: 20160908, end: 201609
  2. LEVOTHYROXIN [Concomitant]
     Active Substance: LEVOTHYROXINE
  3. ZELBORAF [Suspect]
     Active Substance: VEMURAFENIB
     Indication: SKIN CANCER
     Route: 048
     Dates: start: 20160728, end: 201609
  4. POLYTECH GLYC [Concomitant]

REACTIONS (1)
  - Death [None]

NARRATIVE: CASE EVENT DATE: 201609
